FAERS Safety Report 6523013-2 (Version None)
Quarter: 2009Q4

REPORT INFORMATION
  Report Type: 
  Country: None (occurrence: None)
  Receive Date: 20091222
  Receipt Date: 20091210
  Transmission Date: 20100525
  Serious: Yes (Hospitalization)
  Sender: FDA-Public Use
  Company Number: 452386

PATIENT
  Age: 59 Year
  Sex: Male
  Weight: 73.9363 kg

DRUGS (6)
  1. LIDOCAINE [Suspect]
     Indication: DRUG USE FOR UNKNOWN INDICATION
     Dosage: 40 INTRAVENOUS
     Route: 042
     Dates: start: 20090603, end: 20090603
  2. PROPOFOL [Suspect]
     Indication: DRUG USE FOR UNKNOWN INDICATION
     Dosage: 250, INTRAVENOUS
     Route: 042
     Dates: start: 20090603, end: 20090603
  3. GOLYTELY /00747901/ [Concomitant]
  4. ASPIRIN [Concomitant]
  5. VITAMIN E [Concomitant]
  6. FISH OIL [Concomitant]

REACTIONS (4)
  - ATRIAL FIBRILLATION [None]
  - CARDIAC DISORDER [None]
  - ELECTROLYTE IMBALANCE [None]
  - FLUID IMBALANCE [None]
